FAERS Safety Report 5238126-5 (Version None)
Quarter: 2007Q1

REPORT INFORMATION
  Report Type: 
  Country: None (occurrence: None)
  Receive Date: 20070215
  Receipt Date: 20070202
  Transmission Date: 20070707
  Serious: Yes (Hospitalization)
  Sender: FDA-Public Use
  Company Number: PHRM2006FR03373

PATIENT
  Age: 75 Year
  Sex: Female
  Weight: 110 kg

DRUGS (9)
  1. LASIX [Concomitant]
  2. DIAMICRON [Concomitant]
  3. ASPEGIC 1000 [Concomitant]
  4. ALLOPURINOL SODIUM [Suspect]
     Dosage: 1 DF, QD
     Route: 048
     Dates: end: 20061030
  5. BIPRETERAX [Suspect]
     Dosage: 1 DF, QD
     Route: 048
     Dates: start: 20050901, end: 20061030
  6. RANITIDINE [Suspect]
     Dosage: 50 MG PER DAY
     Route: 048
     Dates: end: 20061030
  7. TRIATEC [Suspect]
     Dosage: 5 MG, QD
     Route: 048
  8. ACARBOSE [Suspect]
     Dosage: 50 MG, QD
     Route: 048
  9. TAREG [Suspect]
     Dosage: 80 MG, QD
     Route: 048
     Dates: end: 20061030

REACTIONS (7)
  - ARRHYTHMIA SUPRAVENTRICULAR [None]
  - ATRIAL FIBRILLATION [None]
  - DYSPNOEA [None]
  - INFECTION [None]
  - LARYNGEAL OEDEMA [None]
  - MACROGLOSSIA [None]
  - TONGUE DISORDER [None]
